FAERS Safety Report 4365402-0 (Version None)
Quarter: 2004Q2

REPORT INFORMATION
  Report Type: 
  Country: None (occurrence: None)
  Receive Date: 20040525
  Receipt Date: 20040525
  Transmission Date: 20050107
  Serious: Yes (Hospitalization)
  Sender: FDA-Public Use
  Company Number: None

PATIENT
  Age: 42 Year
  Sex: Male

DRUGS (2)
  1. CAPECITABINE [Suspect]
     Indication: RECTAL CANCER
     Dosage: PRE OP 3150 MG QD W/ RADIATION
  2. CAPECITABINE [Suspect]
     Indication: RECTAL CANCER
     Dosage: POST OP 5000 MG QD X 6 CYCLES

REACTIONS (1)
  - ILEUS [None]
